FAERS Safety Report 6755914-4 (Version None)
Quarter: 2010Q2

REPORT INFORMATION
  Report Type: 
  Country: None (occurrence: None)
  Receive Date: 20100603
  Receipt Date: 20100603
  Transmission Date: 20101027
  Serious: Yes (Hospitalization)
  Sender: FDA-Public Use
  Company Number: None

PATIENT
  Age: 57 Year
  Sex: Female
  Weight: 86.1834 kg

DRUGS (2)
  1. MUCINEX DM [Suspect]
     Indication: COUGH
     Dosage: 2 PILL 24 HRS. PO
     Route: 048
     Dates: start: 20100325, end: 20100325
  2. MUCINEX DM [Suspect]
     Indication: NASOPHARYNGITIS
     Dosage: 2 PILL 24 HRS. PO
     Route: 048
     Dates: start: 20100325, end: 20100325

REACTIONS (14)
  - ARRHYTHMIA [None]
  - ASTHENIA [None]
  - CHEST PAIN [None]
  - DIARRHOEA [None]
  - DYSPNOEA [None]
  - ECONOMIC PROBLEM [None]
  - FATIGUE [None]
  - HYPOAESTHESIA [None]
  - NAUSEA [None]
  - PALPITATIONS [None]
  - PARAESTHESIA [None]
  - SYNCOPE [None]
  - VISION BLURRED [None]
  - VOMITING [None]
